FAERS Safety Report 8843371 (Version 3)
Quarter: 2014Q3

REPORT INFORMATION
  Report Type: Report from Study
  Country: US (occurrence: US)
  Receive Date: 20121016
  Receipt Date: 20140820
  Transmission Date: 20150326
  Serious: Yes (Death)
  Sender: FDA-Public Use
  Company Number: US-ROCHE-1132088

PATIENT
  Sex: Male

DRUGS (1)
  1. XELODA [Suspect]
     Active Substance: CAPECITABINE
     Indication: PRODUCT USED FOR UNKNOWN INDICATION
     Dosage: DOSE: 3 TABLETS PER DOSE, 20 DAYS ON, 8 DAYS OFF
     Route: 065
     Dates: start: 20100624

REACTIONS (8)
  - Pancreatic carcinoma [Fatal]
  - Asthenia [Unknown]
  - Decreased appetite [Unknown]
  - Ascites [Unknown]
  - Pain [Unknown]
  - Heart rate increased [Unknown]
  - Muscle atrophy [Unknown]
  - Dizziness postural [Unknown]
